FAERS Safety Report 20891040 (Version 1)
Quarter: 2022Q2

REPORT INFORMATION
  Report Type: Spontaneous
  Country: CA (occurrence: CA)
  Receive Date: 20220530
  Receipt Date: 20220530
  Transmission Date: 20220721
  Serious: Yes (Other)
  Sender: FDA-Public Use
  Company Number: CA-TEVA-2022-CA-2041313

PATIENT
  Age: 61 Year
  Sex: Female

DRUGS (7)
  1. ANASTROZOLE [Interacting]
     Active Substance: ANASTROZOLE
     Indication: Invasive ductal breast carcinoma
     Route: 065
  2. LETROZOLE [Interacting]
     Active Substance: LETROZOLE
     Indication: Invasive ductal breast carcinoma
     Route: 065
  3. LETROZOLE [Interacting]
     Active Substance: LETROZOLE
     Indication: Breast cancer recurrent
     Route: 065
  4. LETROZOLE [Interacting]
     Active Substance: LETROZOLE
     Indication: Breast cancer metastatic
  5. TAMOXIFEN CITRATE [Interacting]
     Active Substance: TAMOXIFEN CITRATE
     Indication: Invasive ductal breast carcinoma
     Route: 065
  6. PALBOCICLIB [Suspect]
     Active Substance: PALBOCICLIB
     Indication: Breast cancer recurrent
     Route: 065
  7. PALBOCICLIB [Suspect]
     Active Substance: PALBOCICLIB
     Indication: Breast cancer metastatic

REACTIONS (3)
  - Drug-induced liver injury [Unknown]
  - Adverse event [Unknown]
  - Drug interaction [Unknown]
